FAERS Safety Report 4820200-6 (Version None)
Quarter: 2005Q4

REPORT INFORMATION
  Report Type: 
  Country: None (occurrence: None)
  Receive Date: 20051014
  Receipt Date: 20050801
  Transmission Date: 20060501
  Serious: No
  Sender: FDA-Public Use
  Company Number: 2005SP002179

PATIENT
  Age: 68 Year
  Sex: Female
  Weight: 47.6277 kg

DRUGS (4)
  1. LUNESTA [Suspect]
     Indication: INSOMNIA
     Dosage: 3 MG;HS;ORAL, 1 MG;X1;ORAL, 1.5 MG;X1;ORAL
     Route: 048
     Dates: start: 20050701, end: 20050804
  2. LUNESTA [Suspect]
     Indication: INSOMNIA
     Dosage: 3 MG;HS;ORAL, 1 MG;X1;ORAL, 1.5 MG;X1;ORAL
     Route: 048
     Dates: start: 20050701, end: 20050804
  3. LUNESTA [Suspect]
     Indication: INSOMNIA
     Dosage: 3 MG;HS;ORAL, 1 MG;X1;ORAL, 1.5 MG;X1;ORAL
     Route: 048
     Dates: start: 20050701, end: 20050804
  4. REMERON [Concomitant]

REACTIONS (1)
  - SOMNOLENCE [None]
